FAERS Safety Report 9300788 (Version 2)
Quarter: 2013Q2

REPORT INFORMATION
  Report Type: Spontaneous
  Country: US (occurrence: US)
  Receive Date: 20130521
  Receipt Date: 20130610
  Transmission Date: 20140414
  Serious: Yes (Death)
  Sender: FDA-Public Use
  Company Number: US-PFIZER INC-2013131040

PATIENT
  Age: 39 Year
  Sex: Male
  Weight: 120.18 kg

DRUGS (9)
  1. MORPHINE SULFATE [Suspect]
     Indication: PRODUCT USED FOR UNKNOWN INDICATION
     Dosage: UNK
     Route: 065
  2. ZOLPIDEM TARTRATE [Suspect]
     Indication: PRODUCT USED FOR UNKNOWN INDICATION
     Dosage: UNK
     Route: 065
  3. CODEINE [Concomitant]
  4. CLONAZEPAM [Concomitant]
  5. FLUOXETINE [Concomitant]
  6. SERTRALINE [Concomitant]
  7. VENLAFAXINE [Concomitant]
  8. OLANZAPINE [Concomitant]
  9. METOPROLOL [Concomitant]

REACTIONS (1)
  - Accidental overdose [Fatal]
